FAERS Safety Report 17915032 (Version 1)
Quarter: 2020Q2

REPORT INFORMATION
  Report Type: Report from Study
  Country: PL (occurrence: PL)
  Receive Date: 20200619
  Receipt Date: 20200619
  Transmission Date: 20200714
  Serious: Yes (Other)
  Sender: FDA-Public Use
  Company Number: PL-ROCHE-2163362

PATIENT

DRUGS (4)
  1. BEVACIZUMAB. [Suspect]
     Active Substance: BEVACIZUMAB
     Indication: COLORECTAL CANCER METASTATIC
     Dosage: ON DAYS 1 AND 15 OF A 28-DAY TREATMENT CYCLE (WITH TRIFLURIDINE/TIPIRACIL)
     Route: 042
  2. TIPIRACIL HYDROCHLORIDE;TRIFLURIDINE [Suspect]
     Active Substance: TIPIRACIL HYDROCHLORIDE\TRIFLURIDINE
     Indication: COLORECTAL CANCER METASTATIC
     Dosage: DOSE: 35 MG/M2 GIVEN ORALLY BID ON DAYS 1-5 AND 8-12 IN A 28-DAY CYCLE
     Route: 048
  3. CAPECITABINE. [Suspect]
     Active Substance: CAPECITABINE
     Indication: COLORECTAL CANCER METASTATIC
     Route: 048
  4. BEVACIZUMAB. [Suspect]
     Active Substance: BEVACIZUMAB
     Dosage: 7.5 MG/KG ON DAY 1 IN A 21-DAY TREATMENT CYCLE (WITH CAPECITABINE)
     Route: 042

REACTIONS (20)
  - Nausea [Unknown]
  - Decreased appetite [Unknown]
  - Stomatitis [Unknown]
  - Febrile neutropenia [Unknown]
  - Fatigue [Unknown]
  - Blood bilirubin increased [Unknown]
  - Neutrophil count decreased [Unknown]
  - Palmar-plantar erythrodysaesthesia syndrome [Unknown]
  - Vomiting [Unknown]
  - Weight decreased [Unknown]
  - Hypertension [Unknown]
  - Abdominal pain [Unknown]
  - Dyspnoea [Unknown]
  - Thrombocytopenia [Unknown]
  - Neutropenia [Unknown]
  - White blood cell count decreased [Unknown]
  - Anaemia [Unknown]
  - Asthenia [Unknown]
  - Diarrhoea [Unknown]
  - Alanine aminotransferase increased [Unknown]
